FAERS Safety Report 21009861 (Version 1)
Quarter: 2022Q2

REPORT INFORMATION
  Report Type: Spontaneous
  Country: US (occurrence: None)
  Receive Date: 20220626
  Receipt Date: 20220626
  Transmission Date: 20220721
  Serious: No
  Sender: FDA-Public Use
  Company Number: None

PATIENT
  Age: 27 Year
  Sex: Female
  Weight: 67.77 kg

DRUGS (3)
  1. PHEXXI [Suspect]
     Active Substance: CITRIC ACID MONOHYDRATE\LACTIC ACID, L-\POTASSIUM BITARTRATE
     Indication: Contraception
     Dosage: OTHER QUANTITY : 1 SUPPOSITORY(IES);?FREQUENCY : AS NEEDED;?
     Route: 067
     Dates: start: 20220624, end: 20220624
  2. PAXIL [Concomitant]
     Active Substance: PAROXETINE HYDROCHLORIDE
  3. VITAMINS [Concomitant]
     Active Substance: VITAMINS

REACTIONS (1)
  - Genital burning sensation [None]

NARRATIVE: CASE EVENT DATE: 20220624
